FAERS Safety Report 10025962 (Version 1)
Quarter: 2014Q1

REPORT INFORMATION
  Report Type: Spontaneous
  Country: JP (occurrence: None)
  Receive Date: 20140318
  Receipt Date: 20140318
  Transmission Date: 20141002
  Serious: Yes (Death)
  Sender: FDA-Public Use
  Company Number: 2014P1002010

PATIENT
  Age: 64 Year
  Sex: Female

DRUGS (3)
  1. HEPARIN [Suspect]
     Indication: THROMBOSIS PROPHYLAXIS
     Route: 042
  2. ALTEPLASE [Suspect]
     Indication: THROMBOLYSIS
     Route: 042
  3. WARFARIN [Concomitant]

REACTIONS (10)
  - Coma [None]
  - Hemiplegia [None]
  - Carotid artery occlusion [None]
  - Activated partial thromboplastin time prolonged [None]
  - Renal failure acute [None]
  - Shock [None]
  - Cardio-respiratory arrest [None]
  - Splenic infarction [None]
  - Renal infarct [None]
  - Ischaemic stroke [None]
